FAERS Safety Report 7327536-8 (Version None)
Quarter: 2011Q1

REPORT INFORMATION
  Report Type: 
  Country: None (occurrence: None)
  Receive Date: 20110303
  Receipt Date: 20110218
  Transmission Date: 20110831
  Serious: No
  Sender: FDA-Public Use
  Company Number: US-BIOGENIDEC-2011BI006863

PATIENT
  Age: 54 Year
  Sex: Female

DRUGS (2)
  1. TYSABRI [Suspect]
     Indication: MULTIPLE SCLEROSIS
     Route: 042
     Dates: start: 20080811, end: 20100615
  2. TYSABRI [Suspect]
     Route: 042
     Dates: start: 20100721, end: 20110105

REACTIONS (2)
  - TOOTH FRACTURE [None]
  - MENTAL IMPAIRMENT [None]
